FAERS Safety Report 7010548-1 (Version None)
Quarter: 2010Q3

REPORT INFORMATION
  Report Type: 
  Country: None (occurrence: None)
  Receive Date: 20100923
  Receipt Date: 20100915
  Transmission Date: 20110219
  Serious: Yes (Death, Life-Threatening, Hospitalization, Disabling, Other)
  Sender: FDA-Public Use
  Company Number: US-BAXTER-2010BH023105

PATIENT
  Sex: Female

DRUGS (2)
  1. DIANEAL [Suspect]
     Indication: PERITONEAL DIALYSIS
     Route: 033
     Dates: end: 20100810
  2. DIANEAL [Suspect]
     Route: 033
     Dates: start: 20100810, end: 20100816

REACTIONS (4)
  - BRADYCARDIA [None]
  - CARDIAC ARREST [None]
  - ENCEPHALOPATHY [None]
  - VOMITING [None]
